FAERS Safety Report 7982281-0 (Version None)
Quarter: 2011Q4

REPORT INFORMATION
  Report Type: 
  Country: None (occurrence: None)
  Receive Date: 20111215
  Receipt Date: 20111215
  Transmission Date: 20120403
  Serious: Yes (Other)
  Sender: FDA-Public Use
  Company Number: None

PATIENT
  Age: 9 Month
  Sex: Male
  Weight: 9.5254 kg

DRUGS (1)
  1. CEFDINIR [Suspect]
     Indication: EAR INFECTION
     Dosage: 1 TSP
     Route: 048
     Dates: start: 20111210, end: 20111213

REACTIONS (11)
  - CRYING [None]
  - RASH [None]
  - TONGUE DISORDER [None]
  - AGGRESSION [None]
  - DISORIENTATION [None]
  - FALL [None]
  - ABNORMAL BEHAVIOUR [None]
  - IRRITABILITY [None]
  - INSOMNIA [None]
  - STARING [None]
  - DERMATITIS DIAPER [None]
